FAERS Safety Report 24699712 (Version 1)
Quarter: 2024Q4

REPORT INFORMATION
  Report Type: Spontaneous
  Country: US (occurrence: US)
  Receive Date: 20241205
  Receipt Date: 20241205
  Transmission Date: 20250114
  Serious: No
  Sender: ADC THERAPEUTICS
  Company Number: US-ADC THERAPEUTICS SA-ADC-2024-000191

PATIENT
  Age: 74 Year
  Sex: Male

DRUGS (3)
  1. ZYNLONTA [Suspect]
     Active Substance: LONCASTUXIMAB TESIRINE-LPYL
     Indication: Diffuse large B-cell lymphoma
     Dosage: 10 MG/M2, Q3WK
     Route: 042
     Dates: start: 20240313, end: 20240313
  2. ZYNLONTA [Suspect]
     Active Substance: LONCASTUXIMAB TESIRINE-LPYL
     Dosage: 10 MG/M2, Q3WK
     Route: 042
     Dates: start: 20240403, end: 20240403
  3. ZYNLONTA [Suspect]
     Active Substance: LONCASTUXIMAB TESIRINE-LPYL
     Dosage: 10 MG/M2, Q3WK
     Route: 042
     Dates: start: 20240424, end: 20240424

REACTIONS (2)
  - Sunburn [Recovered/Resolved]
  - Photosensitivity reaction [Recovered/Resolved]

NARRATIVE: CASE EVENT DATE: 20240408
